FAERS Safety Report 7090823-5 (Version None)
Quarter: 2010Q4

REPORT INFORMATION
  Report Type: 
  Country: None (occurrence: None)
  Receive Date: 20101109
  Receipt Date: 20101021
  Transmission Date: 20110411
  Serious: Yes (Other)
  Sender: FDA-Public Use
  Company Number: US-RB-014362-10

PATIENT
  Age: 78 Year
  Sex: Female

DRUGS (1)
  1. MUCINEX [Suspect]
     Indication: RESPIRATORY TRACT CONGESTION
     Route: 048
     Dates: start: 20101021

REACTIONS (9)
  - ABDOMINAL DISCOMFORT [None]
  - BLOOD PRESSURE INCREASED [None]
  - FEELING COLD [None]
  - GAIT DISTURBANCE [None]
  - INCOHERENT [None]
  - NAUSEA [None]
  - TREMOR [None]
  - VOMITING [None]
  - WRONG TECHNIQUE IN DRUG USAGE PROCESS [None]
